FAERS Safety Report 6470768-1 (Version None)
Quarter: 2009Q4

REPORT INFORMATION
  Report Type: 
  Country: None (occurrence: None)
  Receive Date: 20091203
  Receipt Date: 20091123
  Transmission Date: 20100525
  Serious: Yes (Life-Threatening)
  Sender: FDA-Public Use
  Company Number: B0607008A

PATIENT
  Age: 34 Year
  Sex: Male

DRUGS (4)
  1. TRACRIUM [Suspect]
     Route: 042
     Dates: start: 20091027, end: 20091027
  2. AUGMENTIN '125' [Suspect]
     Indication: PROPHYLAXIS
     Route: 042
     Dates: start: 20091027, end: 20091027
  3. DIPRIVAN [Suspect]
     Route: 042
     Dates: start: 20091027, end: 20091027
  4. SUFENTANIL CITRATE [Suspect]
     Route: 065
     Dates: start: 20091027, end: 20091027

REACTIONS (5)
  - ANAPHYLACTIC SHOCK [None]
  - BRADYCARDIA [None]
  - BRONCHOSPASM [None]
  - CIRCULATORY COLLAPSE [None]
  - HYPOTENSION [None]
